FAERS Safety Report 10449221 (Version 2)
Quarter: 2019Q3

REPORT INFORMATION
  Report Type: Spontaneous
  Country: FR (occurrence: FR)
  Receive Date: 20140912
  Receipt Date: 20190915
  Transmission Date: 20191004
  Serious: Yes (Death, Hospitalization, Other)
  Sender: FDA-Public Use
  Company Number: FR-CELGENEUS-056-50794-14090174

PATIENT
  Age: 64 Year
  Sex: Female

DRUGS (37)
  1. ROCEPHINE [Suspect]
     Active Substance: CEFTRIAXONE SODIUM
     Route: 048
     Dates: start: 20140414, end: 20140428
  2. FLAGYL [Suspect]
     Active Substance: METRONIDAZOLE\METRONIDAZOLE HYDROCHLORIDE
     Route: 048
     Dates: start: 201311, end: 201311
  3. ZYVOXID [Suspect]
     Active Substance: LINEZOLID
     Indication: STAPHYLOCOCCAL BACTERAEMIA
     Route: 048
     Dates: start: 20140303, end: 20140312
  4. CORTANCYL [Concomitant]
     Active Substance: PREDNISONE
     Indication: PRODUCT USED FOR UNKNOWN INDICATION
     Route: 065
  5. CORTANCYL [Concomitant]
     Active Substance: PREDNISONE
     Route: 065
     Dates: start: 20130909, end: 20130915
  6. TRAMADOL. [Concomitant]
     Active Substance: TRAMADOL
     Indication: PRODUCT USED FOR UNKNOWN INDICATION
     Dosage: 800 MILLIGRAM
     Route: 065
  7. CORTANCYL [Concomitant]
     Active Substance: PREDNISONE
     Route: 065
     Dates: start: 20130916
  8. ACTISKENAN [Concomitant]
     Active Substance: MORPHINE SULFATE
     Indication: RHEUMATOID ARTHRITIS
     Route: 065
     Dates: start: 20131005
  9. ROCEPHINE [Suspect]
     Active Substance: CEFTRIAXONE SODIUM
     Indication: COLITIS
     Dosage: .3333 GRAM
     Route: 048
     Dates: start: 201310, end: 20131111
  10. FLAGYL [Suspect]
     Active Substance: METRONIDAZOLE\METRONIDAZOLE HYDROCHLORIDE
     Route: 048
     Dates: start: 20140414, end: 20140428
  11. TAZOCILLIN [Suspect]
     Active Substance: PIPERACILLIN SODIUM\TAZOBACTAM SODIUM
     Indication: ESCHERICHIA INFECTION
  12. INEXIUM [Concomitant]
     Active Substance: ESOMEPRAZOLE
     Indication: PRODUCT USED FOR UNKNOWN INDICATION
     Dosage: 20 MILLIGRAM
     Route: 065
  13. ROCEPHINE [Suspect]
     Active Substance: CEFTRIAXONE SODIUM
     Route: 048
     Dates: start: 201311, end: 201311
  14. TAZOCILLIN [Suspect]
     Active Substance: PIPERACILLIN SODIUM\TAZOBACTAM SODIUM
     Indication: COLITIS
     Route: 041
  15. OXYCONTIN [Concomitant]
     Active Substance: OXYCODONE HYDROCHLORIDE
     Indication: PRODUCT USED FOR UNKNOWN INDICATION
     Dosage: 15 MILLIGRAM
     Route: 065
  16. CORTANCYL [Concomitant]
     Active Substance: PREDNISONE
     Route: 065
     Dates: start: 20130902, end: 20130908
  17. SKENAN [Concomitant]
     Active Substance: MORPHINE SULFATE
     Indication: RHEUMATOID ARTHRITIS
     Route: 065
     Dates: start: 20131005
  18. ROCEPHINE [Suspect]
     Active Substance: CEFTRIAXONE SODIUM
     Route: 048
     Dates: start: 20140225, end: 20140228
  19. FLAGYL [Suspect]
     Active Substance: METRONIDAZOLE\METRONIDAZOLE HYDROCHLORIDE
     Indication: COLITIS
     Dosage: 166.6667 MILLIGRAM
     Route: 048
     Dates: start: 201310, end: 20131111
  20. FLAGYL [Suspect]
     Active Substance: METRONIDAZOLE\METRONIDAZOLE HYDROCHLORIDE
     Route: 048
     Dates: start: 20140225, end: 20140228
  21. LAMALINE [Concomitant]
     Indication: PRODUCT USED FOR UNKNOWN INDICATION
     Route: 065
  22. DUSPATALIN [Concomitant]
     Active Substance: MEBEVERINE
     Indication: PRODUCT USED FOR UNKNOWN INDICATION
     Dosage: 400 GRAM
     Route: 065
  23. OGASTORO [Concomitant]
     Active Substance: LANSOPRAZOLE
     Indication: PRODUCT USED FOR UNKNOWN INDICATION
     Route: 065
  24. CACIT [Concomitant]
     Indication: PRODUCT USED FOR UNKNOWN INDICATION
     Dosage: 500 MILLIGRAM
     Route: 065
  25. TRAMADOL. [Concomitant]
     Active Substance: TRAMADOL
     Route: 065
     Dates: start: 20130916
  26. AZACITIDINE. [Suspect]
     Active Substance: AZACITIDINE
     Dosage: 100 MILLIGRAM
     Route: 058
     Dates: start: 20131114, end: 20131117
  27. AZACITIDINE. [Suspect]
     Active Substance: AZACITIDINE
     Dosage: 100 MILLIGRAM
     Route: 058
     Dates: start: 20140227, end: 20140304
  28. PANFUREX [Concomitant]
     Active Substance: NIFUROXAZIDE
     Indication: PRODUCT USED FOR UNKNOWN INDICATION
     Route: 065
  29. CORTANCYL [Concomitant]
     Active Substance: PREDNISONE
     Dosage: 30 MILLIGRAM
     Route: 065
     Dates: start: 20130826, end: 20130901
  30. TRAMADOL. [Concomitant]
     Active Substance: TRAMADOL
     Route: 065
     Dates: start: 20130902, end: 20130908
  31. TRAMADOL. [Concomitant]
     Active Substance: TRAMADOL
     Route: 065
     Dates: start: 20130909, end: 20130915
  32. OXYCONTIN [Concomitant]
     Active Substance: OXYCODONE HYDROCHLORIDE
     Dosage: 20 MILLIGRAM
     Route: 065
  33. OXYCONTIN [Concomitant]
     Active Substance: OXYCODONE HYDROCHLORIDE
     Dosage: 10 MILLIGRAM
     Route: 065
  34. AZACITIDINE. [Suspect]
     Active Substance: AZACITIDINE
     Indication: MYELODYSPLASTIC SYNDROME
     Dosage: 100 MILLIGRAM
     Route: 058
     Dates: start: 20130930, end: 201310
  35. ENDOTELON [Concomitant]
     Active Substance: HERBALS\VITIS VINIFERA LEAF
     Indication: PRODUCT USED FOR UNKNOWN INDICATION
     Route: 065
  36. PARAFIN OIL [Concomitant]
     Indication: PRODUCT USED FOR UNKNOWN INDICATION
     Route: 065
  37. TRAMADOL. [Concomitant]
     Active Substance: TRAMADOL
     Dosage: 30 MILLIGRAM
     Route: 065
     Dates: start: 20130826, end: 20130901

REACTIONS (17)
  - Constipation [Unknown]
  - Pancytopenia [Fatal]
  - Encephalopathy [Fatal]
  - Abscess intestinal [Unknown]
  - Diverticulitis [Unknown]
  - Injection site haematoma [Unknown]
  - Arthritis [Unknown]
  - Myelitis [Unknown]
  - Subarachnoid haemorrhage [Unknown]
  - Anaemia [Unknown]
  - Diverticulitis [Fatal]
  - Phlebitis [Unknown]
  - Escherichia sepsis [Fatal]
  - Clostridium difficile infection [Unknown]
  - Diverticulitis [Unknown]
  - Fall [Unknown]
  - Staphylococcal infection [Unknown]

NARRATIVE: CASE EVENT DATE: 20131012
